FAERS Safety Report 8505679-0 (Version None)
Quarter: 2012Q3

REPORT INFORMATION
  Report Type: 
  Country: None (occurrence: None)
  Receive Date: 20120712
  Receipt Date: 20120708
  Transmission Date: 20120928
  Serious: Yes (Hospitalization)
  Sender: FDA-Public Use
  Company Number: US-PURDUE-USA-2012-0089340

PATIENT
  Sex: Female
  Weight: 63.311 kg

DRUGS (4)
  1. OXYCODONE HCL/NALOXONE HCL CONTROLLED-RELEASE TABLETS [Concomitant]
     Indication: BACK PAIN
     Dosage: 10 MG, BID
     Route: 048
     Dates: start: 20120418, end: 20120427
  2. OXYCODONE HCL [Suspect]
     Dosage: 5 MG, DAILY
     Route: 048
     Dates: start: 20120419
  3. OXYCODONE HCL/NALOXONE HCL CONTROLLED-RELEASE TABLETS [Concomitant]
     Dosage: 20 MG, BID
     Route: 048
     Dates: start: 20120428, end: 20120507
  4. OXYCODONE HCL/NALOXONE HCL CR TAB20/10MG [Suspect]
     Indication: BACK PAIN
     Dosage: 20 MG, BID
     Route: 048
     Dates: start: 20120508

REACTIONS (1)
  - RECTAL PERFORATION [None]
